FAERS Safety Report 8182852-5 (Version None)
Quarter: 2012Q1

REPORT INFORMATION
  Report Type: 
  Country: None (occurrence: None)
  Receive Date: 20120305
  Receipt Date: 20120223
  Transmission Date: 20120608
  Serious: Yes (Hospitalization)
  Sender: FDA-Public Use
  Company Number: US-BAYER-2011-091071

PATIENT
  Age: 44 Year
  Sex: Female
  Weight: 95.238 kg

DRUGS (1)
  1. YAZ [Suspect]
     Dosage: UNK
     Route: 048
     Dates: start: 20080901

REACTIONS (4)
  - CHOLELITHIASIS [None]
  - FEAR [None]
  - PAIN [None]
  - GALLBLADDER INJURY [None]
